FAERS Safety Report 5107936-7 (Version None)
Quarter: 2006Q3

REPORT INFORMATION
  Report Type: 
  Country: None (occurrence: None)
  Receive Date: 20060915
  Receipt Date: 20060905
  Transmission Date: 20061208
  Serious: Yes (Other)
  Sender: FDA-Public Use
  Company Number: EM2006-0483

PATIENT
  Sex: Female

DRUGS (7)
  1. TOBI [Suspect]
     Indication: PSEUDOMONAS INFECTION
     Dosage: SEE IMAGE
     Route: 055
     Dates: start: 20060826, end: 20060827
  2. TOBI [Suspect]
     Indication: PSEUDOMONAS INFECTION
     Dosage: SEE IMAGE
     Route: 055
     Dates: start: 20060831, end: 20060831
  3. ZITHROMAX [Concomitant]
  4. AVAPRO [Concomitant]
  5. ACCOLATE [Concomitant]
  6. PULMICORT [Concomitant]
  7. ALBUTEROL [Concomitant]

REACTIONS (4)
  - CHEST DISCOMFORT [None]
  - DYSPNOEA [None]
  - HYPERTENSION [None]
  - TACHYCARDIA [None]
